FAERS Safety Report 5897000-1 (Version None)
Quarter: 2008Q3

REPORT INFORMATION
  Report Type: 
  Country: None (occurrence: None)
  Receive Date: 20080924
  Receipt Date: 20080411
  Transmission Date: 20090109
  Serious: Yes (Other)
  Sender: FDA-Public Use
  Company Number: US-ASTRAZENECA-2008UW07436

PATIENT
  Age: 31 Year
  Sex: Female

DRUGS (2)
  1. SEROQUEL [Suspect]
     Dosage: 150 MG PO
     Route: 048
  2. KLONOPIN [Concomitant]

REACTIONS (4)
  - DYSGEUSIA [None]
  - ENERGY INCREASED [None]
  - INSOMNIA [None]
  - WEIGHT DECREASED [None]
